FAERS Safety Report 12798314 (Version 1)
Quarter: 2016Q3

REPORT INFORMATION
  Report Type: Spontaneous
  Country: US (occurrence: US)
  Receive Date: 20160930
  Receipt Date: 20160930
  Transmission Date: 20161109
  Serious: No
  Sender: FDA-Public Use
  Company Number: ALCN2016US006671

PATIENT
  Age: 67 Year
  Sex: Male

DRUGS (1)
  1. TRAVATAN Z [Suspect]
     Active Substance: TRAVOPROST
     Indication: PRODUCT USED FOR UNKNOWN INDICATION
     Route: 047

REACTIONS (5)
  - Ocular hyperaemia [Unknown]
  - Blepharitis [Unknown]
  - Eye inflammation [Unknown]
  - Erythema of eyelid [Unknown]
  - Eye irritation [Unknown]
